FAERS Safety Report 14461504 (Version 2)
Quarter: 2018Q4

REPORT INFORMATION
  Report Type: Spontaneous
  Country: US (occurrence: US)
  Receive Date: 20180130
  Receipt Date: 20181219
  Transmission Date: 20190204
  Serious: No
  Sender: FDA-Public Use
  Company Number: US-ALLERGAN-1774042US

PATIENT
  Sex: Female

DRUGS (5)
  1. INDERAL [Concomitant]
     Active Substance: PROPRANOLOL HYDROCHLORIDE
     Indication: HYPERTENSION
     Dosage: UNK
     Route: 048
  2. SPIRONOLACTONE. [Concomitant]
     Active Substance: SPIRONOLACTONE
     Indication: ABDOMINAL DISTENSION
     Dosage: UNK UNK, PRN
     Route: 048
  3. ZOCOR [Concomitant]
     Active Substance: SIMVASTATIN
     Indication: BLOOD CHOLESTEROL INCREASED
     Dosage: 20 MG, QD
     Route: 048
  4. ESCITALOPRAM OXALATE - BP [Suspect]
     Active Substance: ESCITALOPRAM OXALATE
     Indication: PANIC ATTACK
     Dosage: 30 MG, QD
     Route: 048
     Dates: start: 2013
  5. LINZESS [Concomitant]
     Active Substance: LINACLOTIDE
     Indication: CONSTIPATION
     Dosage: 145 MG, PRN
     Route: 048

REACTIONS (5)
  - Lip dry [Recovered/Resolved]
  - Nervousness [Recovered/Resolved]
  - Off label use [Unknown]
  - Dry mouth [Recovered/Resolved]
  - Wrong technique in product usage process [Unknown]
